FAERS Safety Report 7812378-7 (Version None)
Quarter: 2011Q4

REPORT INFORMATION
  Report Type: 
  Country: None (occurrence: None)
  Receive Date: 20111013
  Receipt Date: 20110908
  Transmission Date: 20120403
  Serious: Yes (Other)
  Sender: FDA-Public Use
  Company Number: DE-GLAXOSMITHKLINE-D0072651A

PATIENT
  Sex: Female

DRUGS (2)
  1. TROBALT [Suspect]
     Dosage: 200MG THREE TIMES PER DAY
     Route: 065
  2. TOPIRAMATE [Concomitant]
     Dosage: 400MG PER DAY
     Route: 065

REACTIONS (9)
  - BRADYPHRENIA [None]
  - ASTHENIA [None]
  - PARAESTHESIA [None]
  - WEIGHT INCREASED [None]
  - APHASIA [None]
  - DEPRESSION [None]
  - CONFUSIONAL STATE [None]
  - MEMORY IMPAIRMENT [None]
  - COORDINATION ABNORMAL [None]
